FAERS Safety Report 23513435 (Version 2)
Quarter: 2024Q1

REPORT INFORMATION
  Report Type: Spontaneous
  Country: TW (occurrence: TW)
  Receive Date: 20240212
  Receipt Date: 20240221
  Transmission Date: 20240410
  Serious: Yes (Life-Threatening, Other)
  Sender: FDA-Public Use
  Company Number: TW-PFIZER INC-202400036445

PATIENT
  Age: 82 Year
  Sex: Female
  Weight: 64.8 kg

DRUGS (3)
  1. PIPERACILLIN SODIUM\TAZOBACTAM SODIUM [Suspect]
     Active Substance: PIPERACILLIN SODIUM\TAZOBACTAM SODIUM
     Indication: Infection
     Dosage: 2.25 G, Q6H
     Dates: start: 20231215, end: 20231220
  2. PANTOPRAZOLE SODIUM [Concomitant]
     Active Substance: PANTOPRAZOLE SODIUM
     Dosage: 40 MG, 1X/DAY(1VIAL ST+ QD IN ICU)
     Dates: start: 20231217, end: 20240123
  3. CLINCIN [CLINDAMYCIN PHOSPHATE] [Concomitant]
     Dosage: 600MG Q6-8H
     Dates: start: 20231218, end: 20240108

REACTIONS (5)
  - Choking [Unknown]
  - Altered state of consciousness [Unknown]
  - Oxygen saturation abnormal [Unknown]
  - Bradycardia [Unknown]
  - Blood pressure decreased [Recovering/Resolving]

NARRATIVE: CASE EVENT DATE: 20231217
